FAERS Safety Report 5682907-0 (Version None)
Quarter: 2008Q1

REPORT INFORMATION
  Report Type: 
  Country: None (occurrence: None)
  Receive Date: 20080327
  Receipt Date: 20080317
  Transmission Date: 20080703
  Serious: Yes (Other)
  Sender: FDA-Public Use
  Company Number: FR-JNJFOC-20080303116

PATIENT
  Sex: Male

DRUGS (6)
  1. PREZISTA [Suspect]
     Indication: HIV INFECTION
     Route: 048
  2. MARAVIROC [Suspect]
     Indication: HIV INFECTION
     Route: 048
  3. TIPRANAVIR [Suspect]
     Indication: HIV INFECTION
     Route: 048
  4. ISENTRESS [Suspect]
     Indication: HIV INFECTION
     Route: 048
  5. TRUVADA [Suspect]
     Indication: HIV INFECTION
     Route: 048
  6. VIDEX [Suspect]
     Indication: HIV INFECTION
     Route: 048

REACTIONS (1)
  - CYTOLYTIC HEPATITIS [None]
